FAERS Safety Report 8900020 (Version 2)
Quarter: 2012Q4

REPORT INFORMATION
  Report Type: 
  Country: JP (occurrence: JP)
  Receive Date: 20121109
  Receipt Date: 20121126
  Transmission Date: 20130627
  Serious: Yes (Hospitalization)
  Sender: FDA-Public Use
  Company Number: PHHY2012JP102570

PATIENT
  Age: 11 Year
  Sex: Male

DRUGS (1)
  1. CICLOSPORIN [Suspect]
     Indication: MYELODYSPLASTIC SYNDROME
     Dosage: UNK UKN, UNK
     Route: 048
     Dates: start: 200806

REACTIONS (5)
  - Renal artery stenosis [Unknown]
  - Renovascular hypertension [Recovered/Resolved]
  - Renin increased [Recovered/Resolved]
  - Headache [Unknown]
  - Grand mal convulsion [Recovered/Resolved]
